FAERS Safety Report 24647660 (Version 1)
Quarter: 2024Q4

REPORT INFORMATION
  Report Type: Report from Study
  Country: BR (occurrence: BR)
  Receive Date: 20241121
  Receipt Date: 20241121
  Transmission Date: 20250115
  Serious: Yes (Other)
  Sender: TAKEDA
  Company Number: BR-TAKEDA-2024TUS115821

PATIENT
  Sex: Female

DRUGS (1)
  1. VEDOLIZUMAB [Suspect]
     Active Substance: VEDOLIZUMAB
     Indication: Colitis ulcerative
     Dosage: 300 MILLIGRAM

REACTIONS (10)
  - Rectal haemorrhage [Unknown]
  - Product availability issue [Unknown]
  - Depression [Unknown]
  - Impaired quality of life [Unknown]
  - Discouragement [Unknown]
  - Rectal tenesmus [Unknown]
  - Anger [Unknown]
  - Abdominal pain [Unknown]
  - Flatulence [Unknown]
  - Fatigue [Unknown]
